FAERS Safety Report 18107417 (Version 1)
Quarter: 2020Q3

REPORT INFORMATION
  Report Type: Spontaneous
  Country: CA (occurrence: CA)
  Receive Date: 20200804
  Receipt Date: 20200804
  Transmission Date: 20201103
  Serious: Yes (Hospitalization, Other)
  Sender: FDA-Public Use
  Company Number: CA-DENTSPLY-2020SCDP000245

PATIENT

DRUGS (2)
  1. LIDOCAINE HCL [Suspect]
     Active Substance: LIDOCAINE HYDROCHLORIDE
     Indication: ANAESTHESIA
     Dosage: UNK
     Route: 042
  2. LIDOCAINE HCL [Suspect]
     Active Substance: LIDOCAINE HYDROCHLORIDE
     Dosage: 2000 MILLIGRAM, INADVERTENTLY RECEIVED APPROXIMATELY 2000 MG OF INTRAVENOUS LIDOCAINE OVER 20 MIN
     Route: 042

REACTIONS (3)
  - Accidental exposure to product [Recovered/Resolved]
  - Cardiac arrest [Recovered/Resolved]
  - Local anaesthetic systemic toxicity [Recovered/Resolved]
